FAERS Safety Report 4377006-4 (Version None)
Quarter: 2004Q2

REPORT INFORMATION
  Report Type: 
  Country: None (occurrence: None)
  Receive Date: 20040608
  Receipt Date: 20040526
  Transmission Date: 20050107
  Serious: Yes (Hospitalization)
  Sender: FDA-Public Use
  Company Number: JP-JNJFOC-20040600677

PATIENT
  Age: 61 Year
  Sex: Female
  Weight: 43 kg

DRUGS (10)
  1. REMICADE (INFLIXIMAB, RECOMVINANT) LYOPHILIZED POWDER [Suspect]
     Indication: RHEUMATOID ARTHRITIS
     Dosage: 3 MG/KG, 1 IN 1 AS NECESSARY, INTRAVENOUS DRIP
     Route: 041
     Dates: start: 20040206, end: 20040206
  2. REMICADE (INFLIXIMAB, RECOMVINANT) LYOPHILIZED POWDER [Suspect]
     Indication: RHEUMATOID ARTHRITIS
     Dosage: 3 MG/KG, 1 IN 1 AS NECESSARY, INTRAVENOUS DRIP
     Route: 041
     Dates: start: 20040220, end: 20040220
  3. REMICADE (INFLIXIMAB, RECOMVINANT) LYOPHILIZED POWDER [Suspect]
     Indication: RHEUMATOID ARTHRITIS
     Dosage: 3 MG/KG, 1 IN 1 AS NECESSARY, INTRAVENOUS DRIP
     Route: 041
     Dates: start: 20040409, end: 20040409
  4. RHEUMATREX [Concomitant]
  5. RINDERON (BETAMETHASONE) TABLETS [Concomitant]
  6. VOLTAREN SR (DICLOFENAC SODIUM) SUPPOSITORY [Concomitant]
  7. ONEALFA (ALFACALCIDOL) TABLETS [Concomitant]
  8. ZANTAC (RANITIDINE HYDROCHLORIDE) TABLETS [Concomitant]
  9. CYTOTEC (MISOPROSTOL) TABLETS [Concomitant]
  10. ISONIAZID [Concomitant]

REACTIONS (5)
  - HEADACHE [None]
  - METATARSAL EXCISION [None]
  - POST PROCEDURAL COMPLICATION [None]
  - WOUND HAEMORRHAGE [None]
  - WOUND INFECTION [None]
